FAERS Safety Report 17966229 (Version 3)
Quarter: 2020Q3

REPORT INFORMATION
  Report Type: Report from Study
  Country: US (occurrence: US)
  Receive Date: 20200630
  Receipt Date: 20200921
  Transmission Date: 20201103
  Serious: Yes (Other)
  Sender: FDA-Public Use
  Company Number: NVSC2020US184173

PATIENT
  Age: 57 Year
  Sex: Female

DRUGS (3)
  1. DITROPAN [Suspect]
     Active Substance: OXYBUTYNIN CHLORIDE
     Indication: PRODUCT USED FOR UNKNOWN INDICATION
     Dosage: UNK
     Route: 065
  2. COSENTYX [Suspect]
     Active Substance: SECUKINUMAB
     Indication: PSORIATIC ARTHROPATHY
     Dosage: 150 MG, QW (FOR 5 WEEKS AND 150 MG EVERY 4 WEEKS THERE AFTER)
     Route: 058
     Dates: start: 20200304
  3. COSENTYX [Suspect]
     Active Substance: SECUKINUMAB
     Dosage: 300 MG, QMO
     Route: 058
     Dates: start: 20200722

REACTIONS (9)
  - Nasal cavity mass [Unknown]
  - Therapeutic product effect incomplete [Unknown]
  - Pain [Unknown]
  - Back pain [Unknown]
  - Nasal dryness [Unknown]
  - Hordeolum [Recovered/Resolved]
  - Odynophagia [Unknown]
  - Dry mouth [Unknown]
  - Psoriatic arthropathy [Unknown]

NARRATIVE: CASE EVENT DATE: 20200627
